FAERS Safety Report 6543681-9 (Version None)
Quarter: 2010Q1

REPORT INFORMATION
  Report Type: 
  Country: None (occurrence: None)
  Receive Date: 20100120
  Receipt Date: 20100111
  Transmission Date: 20100710
  Serious: Yes (Other)
  Sender: FDA-Public Use
  Company Number: GXKR2010GB00654

PATIENT
  Age: 49 Year
  Sex: Female

DRUGS (6)
  1. GEMCITABINE (NGX) [Interacting]
     Indication: GESTATIONAL TROPHOBLASTIC TUMOUR
     Route: 065
  2. CISPLATIN [Interacting]
     Indication: GESTATIONAL TROPHOBLASTIC TUMOUR
     Route: 065
  3. ETOPOSIDE [Interacting]
     Indication: GESTATIONAL TROPHOBLASTIC TUMOUR
     Route: 065
  4. CARBOPLATIN (NGX) [Interacting]
     Indication: GESTATIONAL TROPHOBLASTIC TUMOUR
     Route: 065
  5. TAXOL [Suspect]
     Indication: GESTATIONAL TROPHOBLASTIC TUMOUR
     Route: 065
  6. ANAESTHETICS [Interacting]
     Route: 065

REACTIONS (6)
  - CONFUSIONAL STATE [None]
  - DRUG INTERACTION [None]
  - GRAND MAL CONVULSION [None]
  - HEADACHE [None]
  - REVERSIBLE POSTERIOR LEUKOENCEPHALOPATHY SYNDROME [None]
  - VISUAL IMPAIRMENT [None]
